FAERS Safety Report 5795304-4 (Version None)
Quarter: 2008Q2

REPORT INFORMATION
  Report Type: 
  Country: None (occurrence: None)
  Receive Date: 20080630
  Receipt Date: 20080619
  Transmission Date: 20081010
  Serious: Yes (Hospitalization)
  Sender: FDA-Public Use
  Company Number: FR-PFIZER INC-2008051819

PATIENT
  Age: 33 Year
  Sex: Female

DRUGS (3)
  1. CEFPODOXIME PROXETIL [Suspect]
     Indication: CONJUNCTIVITIS INFECTIVE
     Dosage: DAILY DOSE:200MG
     Route: 048
     Dates: start: 20080309, end: 20080317
  2. TOBREX [Suspect]
     Indication: CONJUNCTIVITIS INFECTIVE
     Dosage: TEXT:EYE DROPS
     Route: 047
     Dates: start: 20080309, end: 20080317
  3. ESTROGENIC SUBSTANCE [Concomitant]
     Indication: CONTRACEPTION
     Route: 048

REACTIONS (1)
  - MOUTH ULCERATION [None]
